FAERS Safety Report 20648615 (Version 1)
Quarter: 2022Q1

REPORT INFORMATION
  Report Type: Spontaneous
  Country: IT (occurrence: IT)
  Receive Date: 20220329
  Receipt Date: 20220329
  Transmission Date: 20220424
  Serious: Yes (Other)
  Sender: FDA-Public Use
  Company Number: IT-ABBVIE-22K-083-4335908-00

PATIENT
  Age: 43 Year
  Sex: Male

DRUGS (1)
  1. VALPROATE SODIUM [Suspect]
     Active Substance: VALPROATE SODIUM
     Indication: Mental disorder
     Route: 065

REACTIONS (6)
  - Cortisol increased [Not Recovered/Not Resolved]
  - Decreased interest [Recovering/Resolving]
  - Contusion [Unknown]
  - Abdominal discomfort [Recovered/Resolved]
  - Erythema [Unknown]
  - Adverse drug reaction [Unknown]
